FAERS Safety Report 8532673-6 (Version None)
Quarter: 2012Q3

REPORT INFORMATION
  Report Type: 
  Country: None (occurrence: None)
  Receive Date: 20120711
  Receipt Date: 20111014
  Transmission Date: 20120928
  Serious: No
  Sender: FDA-Public Use
  Company Number: PP11-023

PATIENT
  Sex: Female

DRUGS (2)
  1. ALLERGENIC EXTRACTS OF VARIOUS ALLERGENS [Suspect]
     Indication: RHINITIS ALLERGIC
     Dosage: 0.2ML/ONCE/WEEK
  2. ALLERGENIC EXTRACTS OF VARIOUS ALLERGENS   ALLERGIC RHINITIS [Suspect]
     Indication: RHINITIS ALLERGIC
     Dosage: 0.2ML/ONCE/WEEK

REACTIONS (2)
  - INJECTION SITE SWELLING [None]
  - INJECTION SITE ERYTHEMA [None]
